FAERS Safety Report 9397273 (Version 2)
Quarter: 2013Q3

REPORT INFORMATION
  Report Type: Spontaneous
  Country: US (occurrence: None)
  Receive Date: 20130708
  Receipt Date: 20130808
  Transmission Date: 20140515
  Serious: Yes (Other)
  Sender: FDA-Public Use
  Company Number: AUR-APL-2013-05756

PATIENT
  Age: 32 Year
  Sex: Female

DRUGS (4)
  1. RIBAVIRIN (RIBAVIRIN) [Suspect]
     Indication: HEPATITIS C
     Dates: end: 201203
  2. PEGINTERFERON [Suspect]
     Indication: HEPATITIS C
     Route: 058
     Dates: end: 201203
  3. ALBUTEROL [Concomitant]
  4. PRENATAL VITAMINS (PRENATAL /02014401/) [Concomitant]

REACTIONS (3)
  - Abortion spontaneous [None]
  - Atrial septal defect [None]
  - Maternal drugs affecting foetus [None]
